FAERS Safety Report 15706623 (Version 19)
Quarter: 2019Q3

REPORT INFORMATION
  Report Type: Report from Study
  Country: CA (occurrence: CA)
  Receive Date: 20181210
  Receipt Date: 20190809
  Transmission Date: 20191004
  Serious: Yes (Other)
  Sender: FDA-Public Use
  Company Number: CA-SAKK-2018SA192944AA

PATIENT
  Age: 27 Year
  Sex: Female

DRUGS (12)
  1. METHYLPREDNISOLONE. [Concomitant]
     Active Substance: METHYLPREDNISOLONE
     Indication: PREMEDICATION
     Dosage: 1 G, UNK
     Route: 042
     Dates: start: 20180709, end: 20180711
  2. TYLENOL [Concomitant]
     Active Substance: ACETAMINOPHEN
     Indication: PREMEDICATION
     Dosage: 975 MG, UNK
     Route: 048
     Dates: start: 20180709, end: 20180711
  3. OMEGA 3 [DOCOSAHEXAENOIC ACID;EICOSAPENTAENOIC ACID;TOCOPHEROL] [Concomitant]
     Active Substance: DOCONEXENT\ICOSAPENT\TOCOPHEROL
     Indication: SUPPLEMENTATION THERAPY
     Dosage: UNK UNK, UNK
     Route: 048
  4. GRAVOL [Concomitant]
     Active Substance: DIMENHYDRINATE
     Indication: PREMEDICATION
     Dosage: 50 MG, UNK
     Route: 048
     Dates: start: 20180709, end: 20180711
  5. CIMETIDINE [Concomitant]
     Active Substance: CIMETIDINE
     Dosage: 200 MG, UNK
     Route: 048
     Dates: start: 20180709, end: 20180711
  6. ACYCLOVIR [ACICLOVIR] [Concomitant]
     Active Substance: ACYCLOVIR
     Indication: PREMEDICATION
     Dosage: 200 MG, UNK
     Route: 048
     Dates: start: 20180709, end: 20180711
  7. CALCIUM [Concomitant]
     Active Substance: CALCIUM
     Indication: SUPPLEMENTATION THERAPY
     Dosage: UNK UNK, QD
     Route: 048
  8. MAGNESIUM [Concomitant]
     Active Substance: MAGNESIUM
     Indication: SUPPLEMENTATION THERAPY
     Dosage: UNK UNK, QD
     Route: 048
  9. ALEMTUZUMAB [Suspect]
     Active Substance: ALEMTUZUMAB
     Indication: RELAPSING-REMITTING MULTIPLE SCLEROSIS
     Dosage: 12 MG, QD
     Route: 041
     Dates: start: 20180709, end: 20180711
  10. VITAMIN D [COLECALCIFEROL] [Concomitant]
     Active Substance: CHOLECALCIFEROL
     Indication: SUPPLEMENTATION THERAPY
     Dosage: 3000 IU, QD
     Route: 048
  11. VITAMIN C [Concomitant]
     Active Substance: ASCORBIC ACID
     Indication: SUPPLEMENTATION THERAPY
     Dosage: UNK UNK, QD
     Route: 048
  12. BENADRYL [Concomitant]
     Active Substance: DIPHENHYDRAMINE HYDROCHLORIDE
     Indication: PREMEDICATION
     Dosage: 50 MG, UNK, ORAL/IV NOS
     Route: 065
     Dates: start: 20180709, end: 20180711

REACTIONS (53)
  - Sinus congestion [Recovering/Resolving]
  - Specific gravity urine decreased [Recovered/Resolved]
  - Mean cell haemoglobin increased [Not Recovered/Not Resolved]
  - Feeling cold [Recovering/Resolving]
  - Dizziness [Recovered/Resolved]
  - Flushing [Recovered/Resolved]
  - Blood glucose decreased [Unknown]
  - Hypoaesthesia [Recovering/Resolving]
  - Abdominal pain [Recovering/Resolving]
  - Lymphocyte count decreased [Recovered/Resolved]
  - Red cell distribution width decreased [Not Recovered/Not Resolved]
  - Muscle tightness [Recovering/Resolving]
  - Wheezing [Recovered/Resolved]
  - White blood cells urine positive [Recovered/Resolved]
  - Red blood cell count decreased [Recovered/Resolved]
  - Fatigue [Recovering/Resolving]
  - Ocular hyperaemia [Not Recovered/Not Resolved]
  - Bowel movement irregularity [Unknown]
  - Constipation [Recovering/Resolving]
  - Flatulence [Recovering/Resolving]
  - Abdominal discomfort [Recovering/Resolving]
  - Back pain [Recovering/Resolving]
  - Leukopenia [Unknown]
  - Asthenia [Recovered/Resolved]
  - Arthralgia [Recovering/Resolving]
  - Abdominal pain lower [Recovering/Resolving]
  - Urinary retention [Recovering/Resolving]
  - Malaise [Recovered/Resolved]
  - Stress [Recovering/Resolving]
  - White blood cell count decreased [Recovered/Resolved]
  - Respiratory tract congestion [Recovered/Resolved]
  - Feeling hot [Recovered/Resolved]
  - Dizziness [Recovered/Resolved]
  - Sinus disorder [Recovered/Resolved]
  - Ear congestion [Recovering/Resolving]
  - Depressed mood [Recovering/Resolving]
  - Dyspepsia [Recovering/Resolving]
  - Dyspepsia [Recovering/Resolving]
  - Flushing [Recovered/Resolved]
  - Viral infection [Not Recovered/Not Resolved]
  - Anxiety [Recovering/Resolving]
  - Influenza [Not Recovered/Not Resolved]
  - Muscle tightness [Recovering/Resolving]
  - Headache [Recovering/Resolving]
  - Insomnia [Recovering/Resolving]
  - Rhinorrhoea [Recovering/Resolving]
  - Gastrooesophageal reflux disease [Recovering/Resolving]
  - Mean cell haemoglobin concentration increased [Recovered/Resolved]
  - Heart rate increased [Recovered/Resolved]
  - Urticaria [Recovered/Resolved]
  - Nausea [Recovering/Resolving]
  - Oropharyngeal pain [Recovered/Resolved]
  - Vertigo [Recovering/Resolving]

NARRATIVE: CASE EVENT DATE: 20180709
